FAERS Safety Report 19817994 (Version 2)
Quarter: 2021Q4

REPORT INFORMATION
  Report Type: Other
  Country: CA (occurrence: CA)
  Receive Date: 20210910
  Receipt Date: 20211005
  Transmission Date: 20220303
  Serious: Yes (Other)
  Sender: FDA-Public Use
  Company Number: CA-CELLTRION INC.-2021CA012054

PATIENT

DRUGS (11)
  1. RITUXIMAB [Suspect]
     Active Substance: RITUXIMAB
     Indication: Pulmonary fibrosis
     Dosage: 1000 MG (1 EVERY 15 DAYS)
     Route: 042
  2. CELLCEPT [Suspect]
     Active Substance: MYCOPHENOLATE MOFETIL\MYCOPHENOLATE MOFETIL HYDROCHLORIDE
     Indication: Pulmonary fibrosis
     Dosage: 1.5 G, 2 EVERY 1 DAY
     Route: 065
  3. PLAQUENIL [Suspect]
     Active Substance: HYDROXYCHLOROQUINE SULFATE
     Indication: Product used for unknown indication
     Dosage: UNK
     Route: 065
  4. BENADRYL [Concomitant]
     Active Substance: DIPHENHYDRAMINE HYDROCHLORIDE
     Indication: Premedication
     Dosage: 50 MG
     Route: 048
  5. CALCIUM [Concomitant]
     Active Substance: CALCIUM
  6. ERGOCALCIFEROL [Concomitant]
     Active Substance: ERGOCALCIFEROL
  7. PREDNISONE [Concomitant]
     Active Substance: PREDNISONE
     Dosage: 40 MG, 1 EVERY 1 DAY
     Route: 048
  8. RISEDRONATE SODIUM [Concomitant]
     Active Substance: RISEDRONATE SODIUM
  9. SOLU-MEDROL [Concomitant]
     Active Substance: METHYLPREDNISOLONE SODIUM SUCCINATE
     Indication: Premedication
     Dosage: 100 MG
     Route: 042
  10. SULFATRIM [Concomitant]
     Active Substance: SULFAMETHOXAZOLE\TRIMETHOPRIM
  11. TYLENOL [Concomitant]
     Active Substance: ACETAMINOPHEN
     Indication: Premedication
     Dosage: 650 MG
     Route: 048

REACTIONS (12)
  - Blood pressure systolic increased [Recovered/Resolved]
  - Hepatitis alcoholic [Recovered/Resolved]
  - Blood pressure diastolic increased [Recovered/Resolved]
  - Photosensitivity reaction [Recovered/Resolved]
  - Stress [Recovered/Resolved]
  - Heart rate increased [Recovered/Resolved]
  - Infusion related reaction [Recovered/Resolved]
  - Blood pressure increased [Recovered/Resolved]
  - Fatigue [Recovered/Resolved]
  - Therapeutic response decreased [Recovered/Resolved]
  - Off label use [Recovered/Resolved]
  - Off label use [Unknown]
